FAERS Safety Report 6978139-6 (Version None)
Quarter: 2010Q3

REPORT INFORMATION
  Report Type: 
  Country: None (occurrence: None)
  Receive Date: 20100913
  Receipt Date: 20091204
  Transmission Date: 20110219
  Serious: Yes (Other)
  Sender: FDA-Public Use
  Company Number: DE-BAYER-200937805GPV

PATIENT
  Age: 43 Year
  Sex: Female
  Weight: 73 kg

DRUGS (2)
  1. MIRENA [Suspect]
     Indication: CONTRACEPTION
     Route: 015
     Dates: start: 20040101, end: 20091028
  2. MIRENA [Suspect]
     Route: 015
     Dates: start: 20091028

REACTIONS (3)
  - COMPLICATION OF DEVICE REMOVAL [None]
  - DEVICE DISLOCATION [None]
  - NO ADVERSE EVENT [None]
